FAERS Safety Report 17559355 (Version 1)
Quarter: 2020Q1

REPORT INFORMATION
  Report Type: Spontaneous
  Country: US (occurrence: US)
  Receive Date: 20200319
  Receipt Date: 20200319
  Transmission Date: 20200409
  Serious: Yes (Other)
  Sender: FDA-Public Use
  Company Number: US-ROCHE-2569474

PATIENT
  Sex: Male

DRUGS (12)
  1. ADVAIR HFA [Concomitant]
     Active Substance: FLUTICASONE PROPIONATE\SALMETEROL XINAFOATE
  2. BREO ELLIPTA [Concomitant]
     Active Substance: FLUTICASONE FUROATE\VILANTEROL TRIFENATATE
     Indication: ASTHMA
  3. XOLAIR [Suspect]
     Active Substance: OMALIZUMAB
     Indication: ASTHMA
     Route: 065
  4. SLO-BID [Concomitant]
     Active Substance: THEOPHYLLINE ANHYDROUS
  5. VENTOLIN [Concomitant]
     Active Substance: ALBUTEROL SULFATE
  6. SINGULAIR [Concomitant]
     Active Substance: MONTELUKAST SODIUM
  7. FLOVENT [Concomitant]
     Active Substance: FLUTICASONE PROPIONATE
  8. CROMOLYN [CROMOGLICIC ACID] [Concomitant]
     Active Substance: CROMOLYN
  9. PREDNISONE. [Concomitant]
     Active Substance: PREDNISONE
  10. AZMACORT [Concomitant]
     Active Substance: TRIAMCINOLONE ACETONIDE
  11. ATROVENT [Concomitant]
     Active Substance: IPRATROPIUM BROMIDE
  12. THEOPHYLLINE [Concomitant]
     Active Substance: THEOPHYLLINE ANHYDROUS
     Route: 065

REACTIONS (1)
  - Pulmonary function test abnormal [Unknown]
